FAERS Safety Report 5315286-9 (Version None)
Quarter: 2007Q2

REPORT INFORMATION
  Report Type: 
  Country: None (occurrence: None)
  Receive Date: 20070427
  Receipt Date: 20070418
  Transmission Date: 20071010
  Serious: Yes (Other)
  Sender: FDA-Public Use
  Company Number: 163-21880-07041186

PATIENT
  Age: 68 Year
  Sex: Female

DRUGS (4)
  1. REVLIMID [Suspect]
     Indication: MULTIPLE MYELOMA
     Dosage: SEE IMAGE
     Route: 048
     Dates: start: 20060810, end: 20070101
  2. REVLIMID [Suspect]
     Indication: MULTIPLE MYELOMA
     Dosage: SEE IMAGE
     Route: 048
     Dates: start: 20070115
  3. REVLIMID [Suspect]
  4. ANTIBIOTIC TREATMENT (ANTIBIOTICS) [Concomitant]

REACTIONS (2)
  - ANAPHYLACTIC SHOCK [None]
  - ESCHERICHIA SEPSIS [None]
